FAERS Safety Report 4994727-0 (Version None)
Quarter: 2006Q2

REPORT INFORMATION
  Report Type: 
  Country: None (occurrence: None)
  Receive Date: 20060505
  Receipt Date: 20060427
  Transmission Date: 20061013
  Serious: Yes (Hospitalization)
  Sender: FDA-Public Use
  Company Number: GB-ABBOTT-06P-167-0331944-00

PATIENT
  Age: 74 Year
  Sex: Female

DRUGS (16)
  1. EPILIM [Suspect]
     Indication: BIPOLAR DISORDER
     Route: 048
     Dates: start: 20030620
  2. CARBAMAZEPINE [Suspect]
     Indication: BIPOLAR DISORDER
     Route: 048
     Dates: start: 20060101
  3. CARBAMAZEPINE [Suspect]
     Route: 048
     Dates: start: 19980413, end: 20060101
  4. FUSIDATE SODIUM [Suspect]
     Indication: STAPHYLOCOCCAL INFECTION
     Route: 048
     Dates: start: 20060116, end: 20060121
  5. ALENDRONATE SODIUM [Concomitant]
     Indication: DRUG USE FOR UNKNOWN INDICATION
     Route: 048
     Dates: start: 20030915
  6. LACTULOSE [Concomitant]
     Indication: CONSTIPATION
     Route: 048
     Dates: start: 20041120
  7. SENNA [Concomitant]
     Indication: CONSTIPATION
     Route: 048
     Dates: start: 19980413
  8. ASCORBIC ACID [Concomitant]
     Indication: VITAMIN C DEFICIENCY
     Route: 048
     Dates: start: 20010725
  9. SULFADIAZINE [Concomitant]
     Indication: INFECTION
     Route: 061
     Dates: start: 20050302, end: 20060209
  10. CLOTRIMAZOLE [Concomitant]
     Indication: RASH
     Route: 061
     Dates: start: 20051018, end: 20060223
  11. ACETAMINOPHEN W/ CODEINE [Concomitant]
     Indication: PAIN
     Route: 048
     Dates: start: 20050506
  12. BENDROFLUMETHIAZIDE [Concomitant]
     Indication: HYPERTENSION
     Route: 048
     Dates: start: 20000721, end: 20060211
  13. LORAZEPAM [Concomitant]
     Indication: AGITATION
     Route: 048
     Dates: start: 20000704
  14. OXYBUTYNIN [Concomitant]
     Indication: URINARY INCONTINENCE
     Route: 048
     Dates: start: 19980413
  15. IBUPROFEN [Concomitant]
     Indication: PAIN
     Route: 048
     Dates: start: 20001008, end: 20060201
  16. LACRI-LUBE [Concomitant]
     Indication: DRY EYE

REACTIONS (2)
  - JAUNDICE CHOLESTATIC [None]
  - WEIGHT DECREASED [None]
